FAERS Safety Report 4644681-6 (Version None)
Quarter: 2005Q2

REPORT INFORMATION
  Report Type: 
  Country: None (occurrence: None)
  Receive Date: 20050426
  Receipt Date: 20041001
  Transmission Date: 20051028
  Serious: Yes (Life-Threatening)
  Sender: FDA-Public Use
  Company Number: PHBS2004JP13132

PATIENT
  Age: 66 Year
  Sex: Female
  Weight: 29 kg

DRUGS (5)
  1. CRAVIT [Concomitant]
     Indication: PNEUMONIA
     Dosage: 400 MG/DAY
     Route: 048
     Dates: start: 20040916, end: 20040922
  2. CALONAL [Concomitant]
     Indication: POST HERPETIC NEURALGIA
     Route: 048
     Dates: start: 20040916
  3. TEGRETOL [Concomitant]
     Dosage: 200 MG/DAY
     Route: 048
     Dates: start: 20040922, end: 20040922
  4. NEUROTROPIN [Concomitant]
     Indication: POST HERPETIC NEURALGIA
     Dosage: 160 MG/DAY
     Route: 048
     Dates: start: 20040922, end: 20040922
  5. VOLTAREN [Suspect]
     Indication: POST HERPETIC NEURALGIA
     Dosage: 12.5 MG/DAY
     Route: 054
     Dates: start: 20040922, end: 20040922

REACTIONS (23)
  - ACUTE PULMONARY OEDEMA [None]
  - ACUTE RESPIRATORY DISTRESS SYNDROME [None]
  - BLOOD PRESSURE DECREASED [None]
  - BODY TEMPERATURE INCREASED [None]
  - C-REACTIVE PROTEIN INCREASED [None]
  - CHEST PAIN [None]
  - CHEST X-RAY ABNORMAL [None]
  - DISSEMINATED INTRAVASCULAR COAGULATION [None]
  - DRUG HYPERSENSITIVITY [None]
  - HAEMOGLOBIN DECREASED [None]
  - HEART RATE INCREASED [None]
  - LUNG DISORDER [None]
  - NEUTROPHIL COUNT INCREASED [None]
  - NEUTROPHIL PERCENTAGE INCREASED [None]
  - OXYGEN SATURATION DECREASED [None]
  - PLATELET COUNT DECREASED [None]
  - PNEUMONIA BACTERIAL [None]
  - PYREXIA [None]
  - RESPIRATORY RATE INCREASED [None]
  - SHOCK [None]
  - URINE OUTPUT DECREASED [None]
  - WEIGHT DECREASED [None]
  - WHITE BLOOD CELL COUNT INCREASED [None]
